FAERS Safety Report 7125406-1 (Version None)
Quarter: 2010Q4

REPORT INFORMATION
  Report Type: 
  Country: None (occurrence: None)
  Receive Date: 20101129
  Receipt Date: 20101125
  Transmission Date: 20110411
  Serious: Yes (Hospitalization)
  Sender: FDA-Public Use
  Company Number: CO-ROCHE-733760

PATIENT
  Sex: Female

DRUGS (2)
  1. AVASTIN [Suspect]
     Indication: BREAST CANCER
     Route: 042
     Dates: start: 20100311
  2. XELODA [Suspect]
     Indication: BREAST CANCER
     Dosage: FREQUENCY REPORTED AS QD
     Route: 048
     Dates: start: 20100311

REACTIONS (5)
  - ASCITES [None]
  - ASTHENIA [None]
  - DECREASED APPETITE [None]
  - VOMITING [None]
  - WEIGHT DECREASED [None]
